FAERS Safety Report 8308007-9 (Version None)
Quarter: 2012Q2

REPORT INFORMATION
  Report Type: 
  Country: None (occurrence: None)
  Receive Date: 20120424
  Receipt Date: 20120419
  Transmission Date: 20120825
  Serious: Yes (Disabling)
  Sender: FDA-Public Use
  Company Number: JP-GLAXOSMITHKLINE-B0797277A

PATIENT
  Sex: Male
  Weight: 48 kg

DRUGS (19)
  1. PROMACTA [Suspect]
     Indication: IDIOPATHIC THROMBOCYTOPENIC PURPURA
     Dosage: 12.5MG PER DAY
     Route: 048
     Dates: start: 20110722, end: 20110804
  2. RABEPRAZOLE SODIUM [Concomitant]
     Dosage: 20MG PER DAY
     Route: 048
     Dates: start: 20110812
  3. PREDNISOLONE [Concomitant]
     Indication: IDIOPATHIC THROMBOCYTOPENIC PURPURA
     Dosage: 5MG PER DAY
     Route: 048
  4. PROMACTA [Suspect]
     Dosage: 12.5MG TWICE PER DAY
     Route: 048
     Dates: start: 20110819, end: 20110904
  5. PROMACTA [Suspect]
     Route: 048
     Dates: start: 20110905, end: 20110915
  6. PROMACTA [Suspect]
     Route: 048
     Dates: start: 20111111, end: 20111127
  7. PROMACTA [Suspect]
     Dosage: 12.5MG PER DAY
     Route: 048
     Dates: start: 20111207
  8. FUROSEMIDE [Concomitant]
     Dosage: 20MG PER DAY
     Route: 048
  9. COTRIM [Concomitant]
     Dosage: 2G PER DAY
     Route: 048
     Dates: start: 20110801
  10. WARFARIN SODIUM [Concomitant]
     Dosage: 2MG PER DAY
     Route: 048
  11. PROMACTA [Suspect]
     Dosage: 12.5MG PER DAY
     Route: 048
     Dates: start: 20110916, end: 20111110
  12. ASPIRIN [Concomitant]
     Dosage: 100MG PER DAY
     Route: 048
     Dates: start: 20110817, end: 20110917
  13. MINOCYCLINE HYDROCHLORIDE [Concomitant]
     Dosage: 100MG PER DAY
     Route: 048
     Dates: start: 20111020, end: 20111028
  14. ARGAMATE [Concomitant]
     Route: 048
  15. NITRODERM [Concomitant]
     Dosage: 25MG PER DAY
     Route: 061
  16. SIGMART [Concomitant]
     Dosage: 5MG PER DAY
     Route: 048
     Dates: start: 20111125
  17. PROMACTA [Suspect]
     Route: 048
     Dates: start: 20110805, end: 20110818
  18. PROMACTA [Suspect]
     Route: 048
     Dates: start: 20111128, end: 20111206
  19. FOSFOMYCIN [Concomitant]
     Dosage: 1G PER DAY
     Route: 048
     Dates: start: 20110804, end: 20110911

REACTIONS (3)
  - RENAL DISORDER [None]
  - INTRACARDIAC THROMBUS [None]
  - ANAEMIA [None]
